FAERS Safety Report 9485959 (Version 1)
Quarter: 2013Q3

REPORT INFORMATION
  Report Type: Spontaneous
  Country: IT (occurrence: None)
  Receive Date: 20130820
  Receipt Date: 20130820
  Transmission Date: 20140515
  Serious: Yes (Hospitalization)
  Sender: FDA-Public Use
  Company Number: GER/ITL/13/0034108

PATIENT
  Age: 82 Year
  Sex: Male

DRUGS (6)
  1. CLOPIDOGREL (CLOPIDOGREL) [Suspect]
     Indication: THROMBOSIS PROPHYLAXIS
     Dosage: 1 IN 1 D
     Route: 048
     Dates: start: 20130630, end: 20130711
  2. CARDIOASPIRIN (ACETYLSALICYLIC ACID) [Suspect]
     Indication: PLATELET AGGREGATION INHIBITION
     Dosage: 1 IN 1 D
     Route: 048
     Dates: start: 20130630, end: 20130715
  3. CLEXANE [Suspect]
     Indication: THROMBOSIS PROPHYLAXIS
     Dosage: 1 IN 1 D
     Route: 058
     Dates: start: 20130702, end: 20130711
  4. ATORVASTATIN (ATORVASTATIN) [Concomitant]
  5. PANTOPRAZOLE (PANTOPRAZOLE) [Concomitant]
  6. BISOPROLOL [Concomitant]

REACTIONS (2)
  - Haematuria [None]
  - Drug interaction [None]
